FAERS Safety Report 13310053 (Version 1)
Quarter: 2017Q1

REPORT INFORMATION
  Report Type: Spontaneous
  Country: SI (occurrence: SI)
  Receive Date: 20170309
  Receipt Date: 20170309
  Transmission Date: 20170428
  Serious: Yes (Other)
  Sender: FDA-Public Use
  Company Number: SI-BAYER-2017-023983

PATIENT
  Age: 62 Year
  Sex: Female

DRUGS (5)
  1. NEXAVAR [Suspect]
     Active Substance: SORAFENIB
     Indication: HEPATOCELLULAR CARCINOMA
     Dosage: 200 MG, QD  (1ST MONTH)
  2. NEXAVAR [Suspect]
     Active Substance: SORAFENIB
     Indication: HEPATOCELLULAR CARCINOMA
     Dosage: 200 MG, QD  (2ND MONTH)
  3. NEXAVAR [Suspect]
     Active Substance: SORAFENIB
     Indication: HEPATOCELLULAR CARCINOMA
     Dosage: 200 MG, QD (3RD MONTH)
  4. NOLIPREL [INDAPAMIDE,PERINDOPRIL ERBUMINE] [Concomitant]
  5. NEXAVAR [Suspect]
     Active Substance: SORAFENIB
     Indication: HEPATOCELLULAR CARCINOMA
     Dosage: 200 MG, BID  (1ST MONTH)
     Dates: start: 201411

REACTIONS (16)
  - Hyperkeratosis [None]
  - Skin toxicity [None]
  - Speech disorder [None]
  - Dysphagia [None]
  - Weight decreased [None]
  - Tongue discomfort [None]
  - Toxicity to various agents [Not Recovered/Not Resolved]
  - Intentional product use issue [None]
  - Blister [Recovering/Resolving]
  - Fatigue [None]
  - Skin toxicity [None]
  - Oral discomfort [Recovered/Resolved]
  - Oral discomfort [None]
  - Skin disorder [Recovering/Resolving]
  - Hyperhidrosis [None]
  - Gait disturbance [Recovering/Resolving]

NARRATIVE: CASE EVENT DATE: 201411
